FAERS Safety Report 9081385 (Version 1)
Quarter: 2013Q1

REPORT INFORMATION
  Report Type: Spontaneous
  Country: US (occurrence: US)
  Receive Date: 20130130
  Receipt Date: 20130130
  Transmission Date: 20140127
  Serious: Yes (Other)
  Sender: FDA-Public Use
  Company Number: US-RB-049262-13

PATIENT
  Age: 21 Year
  Sex: Female

DRUGS (4)
  1. MUCINEX [Suspect]
     Indication: PRODUCT USED FOR UNKNOWN INDICATION
     Dosage: SINGLE DOSE (UNKNOWN AMOUNT) ON 26/JAN/2013
     Route: 048
     Dates: start: 20130126
  2. MUCINEX [Suspect]
  3. MUCINEX [Suspect]
  4. MUCINEX [Suspect]

REACTIONS (2)
  - Agitation [Not Recovered/Not Resolved]
  - Anxiety [Not Recovered/Not Resolved]
